FAERS Safety Report 25900578 (Version 1)
Quarter: 2025Q4

REPORT INFORMATION
  Report Type: Spontaneous
  Country: EU (occurrence: EU)
  Receive Date: 20251009
  Receipt Date: 20251009
  Transmission Date: 20260118
  Serious: Yes (Hospitalization)
  Sender: ROCHE
  Company Number: None

PATIENT
  Age: 74 Year
  Sex: Female
  Weight: 88 kg

DRUGS (11)
  1. ALTEPLASE [Suspect]
     Active Substance: ALTEPLASE
     Indication: Ischaemic stroke
     Route: 042
     Dates: start: 20250319, end: 20250319
  2. ALTEPLASE [Suspect]
     Active Substance: ALTEPLASE
     Route: 042
     Dates: start: 20250319, end: 20250319
  3. LOVENOX [Interacting]
     Active Substance: ENOXAPARIN SODIUM
     Indication: Ischaemic stroke
     Route: 042
     Dates: start: 20250320, end: 20250321
  4. LOVENOX [Interacting]
     Active Substance: ENOXAPARIN SODIUM
     Route: 042
     Dates: start: 20250322, end: 20250324
  5. LOVENOX [Interacting]
     Active Substance: ENOXAPARIN SODIUM
     Route: 042
     Dates: start: 20250327, end: 20250414
  6. KARDEGIC [Concomitant]
     Active Substance: ASPIRIN DL-LYSINE
     Indication: Ischaemic stroke
     Route: 048
     Dates: start: 20250321, end: 20250321
  7. CANDESARTAN ARROW 16 mg [Concomitant]
     Indication: Hypertension
     Route: 048
  8. FLUDEX 1,5 mg [Concomitant]
     Indication: Hypertension
     Route: 048
  9. LERCAN 10 mg [Concomitant]
     Indication: Hypertension
     Route: 048
  10. NEBIVOLOL VIATRIS 5 mg [Concomitant]
     Indication: Hypertension
     Route: 048
  11. PRAVASTATINE ARROW GENERIQUES 20 mg [Concomitant]
     Indication: Hypercholesterolaemia
     Route: 048

REACTIONS (2)
  - Drug interaction [Recovered/Resolved]
  - Abdominal wall haematoma [Recovered/Resolved]

NARRATIVE: CASE EVENT DATE: 20250320
